FAERS Safety Report 9064838 (Version 2)
Quarter: 2013Q2

REPORT INFORMATION
  Report Type: Spontaneous
  Country: US (occurrence: US)
  Receive Date: 20130130
  Receipt Date: 20130401
  Transmission Date: 20140414
  Serious: Yes (Hospitalization, Other)
  Sender: FDA-Public Use
  Company Number: US-BAYER-2013-010743

PATIENT
  Age: 31 Year
  Sex: Female
  Weight: 97.51 kg

DRUGS (5)
  1. YASMIN [Suspect]
  2. YAZ [Suspect]
  3. VALIUM [Concomitant]
     Indication: PAIN
  4. OXYCONTIN [Concomitant]
     Indication: PAIN
  5. TOPAMAX [Concomitant]

REACTIONS (5)
  - Deep vein thrombosis [None]
  - Deep vein thrombosis [None]
  - Injury [None]
  - Pain [None]
  - Pain [None]
